FAERS Safety Report 21705849 (Version 1)
Quarter: 2022Q4

REPORT INFORMATION
  Report Type: Spontaneous
  Country: US (occurrence: US)
  Receive Date: 20221209
  Receipt Date: 20221209
  Transmission Date: 20230112
  Serious: Yes (Death, Hospitalization, Other)
  Sender: FDA-Public Use
  Company Number: US-009507513-2212USA002540

PATIENT
  Age: 45 Year
  Sex: Female

DRUGS (1)
  1. PREVYMIS [Suspect]
     Active Substance: LETERMOVIR
     Indication: Prophylaxis
     Dosage: 480 MILLIGRAM, DAILY
     Route: 048

REACTIONS (2)
  - Brain injury [Fatal]
  - Adverse event [Unknown]

NARRATIVE: CASE EVENT DATE: 20220307
